FAERS Safety Report 8614243-4 (Version None)
Quarter: 2012Q3

REPORT INFORMATION
  Report Type: 
  Country: None (occurrence: None)
  Receive Date: 20120813
  Receipt Date: 20120813
  Transmission Date: 20120928
  Serious: Yes (Hospitalization)
  Sender: FDA-Public Use
  Company Number: None

PATIENT
  Age: 86 Year
  Sex: Male
  Weight: 141.4 kg

DRUGS (2)
  1. SULFAMETHOXAZOLE AND TRIMETHOPRIM [Suspect]
     Indication: URINARY TRACT INFECTION
     Dosage: 1 TAB EVERY DAY PO
     Route: 048
     Dates: start: 20120505, end: 20120507
  2. VALSARTAN [Suspect]
     Indication: CARDIAC FAILURE CONGESTIVE
     Dosage: 80 MG EVERY DAY PO
     Route: 048
     Dates: start: 20120214, end: 20120605

REACTIONS (3)
  - RENAL FAILURE ACUTE [None]
  - DIALYSIS [None]
  - SYNCOPE [None]
